FAERS Safety Report 4808989-3 (Version None)
Quarter: 2005Q4

REPORT INFORMATION
  Report Type: 
  Country: None (occurrence: None)
  Receive Date: 20051021
  Receipt Date: 20011002
  Transmission Date: 20060501
  Serious: Yes (Other)
  Sender: FDA-Public Use
  Company Number: US_011074918

PATIENT
  Age: 52 Year
  Sex: Male

DRUGS (5)
  1. ZYPREXA [Suspect]
     Indication: SCHIZOPHRENIA
     Dosage: 10 MG/DAY
     Route: 048
     Dates: start: 20010727, end: 20010810
  2. QUETIAPINE FUMARATE [Concomitant]
  3. CHLORPROMAZINE HCL [Concomitant]
  4. TASMOLIN (BIPERIDEN) [Concomitant]
  5. SEPAZON    (CLOXAZOLAM) [Concomitant]

REACTIONS (4)
  - CONDITION AGGRAVATED [None]
  - NASOPHARYNGITIS [None]
  - PLATELET COUNT DECREASED [None]
  - SCHIZOPHRENIA [None]
